FAERS Safety Report 6461732-7 (Version None)
Quarter: 2009Q4

REPORT INFORMATION
  Report Type: 
  Country: None (occurrence: None)
  Receive Date: 20091130
  Receipt Date: 20091117
  Transmission Date: 20100525
  Serious: Yes (Other)
  Sender: FDA-Public Use
  Company Number: PHHY2009BR50479

PATIENT
  Age: 50 Year
  Sex: Male

DRUGS (1)
  1. DIOVAN AMLO [Suspect]
     Dosage: 160/5 MG
     Route: 048
     Dates: start: 20091110

REACTIONS (4)
  - CARDIAC DISORDER [None]
  - HYPERTENSION [None]
  - PAIN [None]
  - VOMITING [None]
